FAERS Safety Report 8947834 (Version 1)
Quarter: 2012Q4

REPORT INFORMATION
  Report Type: Spontaneous
  Country: US (occurrence: None)
  Receive Date: 20121203
  Receipt Date: 20121203
  Transmission Date: 20130627
  Serious: Yes (Hospitalization)
  Sender: FDA-Public Use
  Company Number: None

PATIENT
  Age: 69 Year
  Sex: Female
  Weight: 56.2 kg

DRUGS (10)
  1. TRASTUZUMAB [Suspect]
     Indication: BREAST CANCER
     Dosage: 6mg/kg once every 21 day
     Dates: start: 20120119, end: 20121108
  2. EVEROLIMUS [Suspect]
     Indication: BREAST CANCER
     Dosage: 5mg every other day
     Dates: start: 20120524, end: 20121128
  3. OMEPRAZOLE [Concomitant]
  4. VENLAFAXINE [Concomitant]
  5. AROMASIN [Concomitant]
  6. IBUPROFEN [Concomitant]
  7. AMBIEN [Concomitant]
  8. AUGMENTIN [Concomitant]
  9. ZOMETA [Concomitant]
  10. ZITHROMAX [Concomitant]

REACTIONS (4)
  - Breast cancer [None]
  - Atelectasis [None]
  - Cardiomegaly [None]
  - Pericardial effusion [None]
